FAERS Safety Report 5218238-2 (Version None)
Quarter: 2007Q1

REPORT INFORMATION
  Report Type: 
  Country: None (occurrence: None)
  Receive Date: 20061130
  Receipt Date: 20060414
  Transmission Date: 20070707
  Serious: Yes (Hospitalization)
  Sender: FDA-Public Use
  Company Number: US_0509121759

PATIENT
  Sex: Female
  Weight: 124.7 kg

DRUGS (1)
  1. ZYPREXA [Suspect]
     Indication: SCHIZOPHRENIA
     Dosage: 5 MG, DAILY (1/D), ORAL
     Route: 048
     Dates: start: 19980101, end: 20020101

REACTIONS (9)
  - ANXIETY [None]
  - ASTHENIA [None]
  - BLOOD CHOLESTEROL INCREASED [None]
  - DIABETES MELLITUS [None]
  - EMOTIONAL DISTRESS [None]
  - HYPERGLYCAEMIA [None]
  - HYPERTENSION [None]
  - OBESITY [None]
  - PALPITATIONS [None]
